FAERS Safety Report 6801742-0 (Version None)
Quarter: 2010Q2

REPORT INFORMATION
  Report Type: 
  Country: None (occurrence: None)
  Receive Date: 20100629
  Receipt Date: 20100618
  Transmission Date: 20101027
  Serious: Yes (Hospitalization, Other)
  Sender: FDA-Public Use
  Company Number: NO-ASTRAZENECA-2010SE28578

PATIENT
  Age: 21090 Day
  Sex: Female

DRUGS (3)
  1. PROPOFOL [Suspect]
     Indication: INDUCTION OF ANAESTHESIA
     Dosage: 5-10 MG/KG/HOUR
     Route: 042
     Dates: start: 20100607, end: 20100607
  2. ULTIVA [Concomitant]
     Indication: INDUCTION OF ANAESTHESIA
     Dosage: 0.2-0.4 MICROG/KG/MIN
     Route: 042
     Dates: start: 20100607, end: 20100607
  3. CHLORHEXIDINE [Concomitant]
     Indication: INFECTION PROPHYLAXIS
     Dosage: SKIN AND VAGINA
     Route: 061
     Dates: start: 20100607, end: 20100607

REACTIONS (3)
  - AIRWAY COMPLICATION OF ANAESTHESIA [None]
  - LARYNGEAL OEDEMA [None]
  - PROCEDURAL HYPOTENSION [None]
